FAERS Safety Report 4045661 (Version 2)
Quarter: 2020Q3

REPORT INFORMATION
  Report Type: Spontaneous
  Country: FR (occurrence: None)
  Receive Date: 20031209
  Receipt Date: 20031212
  Transmission Date: 20201104
  Serious: Yes (Hospitalization)
  Sender: FDA-Public Use
  Company Number: 03H-056-0242844-00

PATIENT
  Age: 59 Year
  Sex: Female

DRUGS (8)
  1. DOLASETRON [Concomitant]
  2. ZOPICLONE [Suspect]
     Active Substance: ZOPICLONE
     Dates: start: 20030925, end: 20030925
  3. HYDROXYZINE HYDROCHLORIDE [Concomitant]
  4. MORPHINE [Suspect]
     Active Substance: MORPHINE
     Dates: start: 20030926, end: 20030926
  5. ISOFLURANE. [Suspect]
     Active Substance: ISOFLURANE
     Indication: ANAESTHESIA
     Dates: start: 20030926, end: 20030926
  6. DIAZEPAM. [Concomitant]
     Active Substance: DIAZEPAM
  7. TOPALGIC (FRANCE) [Concomitant]
     Active Substance: TRAMADOL HYDROCHLORIDE
  8. PARECOXIB SODIUM. [Suspect]
     Active Substance: PARECOXIB SODIUM
     Dates: start: 20030926, end: 20030926

REACTIONS (7)
  - Asthenia [None]
  - Pyrexia [None]
  - Toxic skin eruption [None]
  - Nausea [None]
  - Alopecia [None]
  - Vomiting [None]
  - Oedema peripheral [None]

NARRATIVE: CASE EVENT DATE: 20030927
